FAERS Safety Report 5753778-9 (Version None)
Quarter: 2008Q2

REPORT INFORMATION
  Report Type: 
  Country: None (occurrence: None)
  Receive Date: 20080527
  Receipt Date: 20080508
  Transmission Date: 20081010
  Serious: Yes (Other)
  Sender: FDA-Public Use
  Company Number: 8032666

PATIENT
  Age: 71 Year
  Sex: Female

DRUGS (9)
  1. PREDNISOLONE [Suspect]
     Dates: start: 20080210, end: 20080215
  2. CLOPIDOGREL [Suspect]
     Indication: DRESSLER'S SYNDROME
     Dosage: PO
     Route: 048
     Dates: start: 20080204, end: 20080220
  3. ATORVASTATIN [Concomitant]
  4. BISOPROLOL FUMARATE [Concomitant]
  5. SERETIDE /01420901/ [Concomitant]
  6. SPIRONOLACTONE [Concomitant]
  7. TROPIUM /00011502/ [Concomitant]
  8. VALSARTAN [Concomitant]
  9. ASPIRIN [Suspect]
     Indication: DRESSLER'S SYNDROME
     Dosage: PO
     Route: 048
     Dates: start: 20080204, end: 20080220

REACTIONS (2)
  - FAECES DISCOLOURED [None]
  - HAEMOGLOBIN ABNORMAL [None]
